FAERS Safety Report 7798243-2 (Version None)
Quarter: 2011Q4

REPORT INFORMATION
  Report Type: 
  Country: None (occurrence: None)
  Receive Date: 20111004
  Receipt Date: 20110920
  Transmission Date: 20120403
  Serious: Yes (Hospitalization, Other)
  Sender: FDA-Public Use
  Company Number: 2011P1009047

PATIENT
  Age: 60 Year
  Sex: Male

DRUGS (4)
  1. SOLODYN [Suspect]
     Indication: DERMATITIS ALLERGIC
     Dosage: 105 MG;QD;PO
     Route: 048
     Dates: start: 20110413, end: 20110501
  2. PROTONIX [Concomitant]
  3. ASPIRIN [Concomitant]
  4. TOPROL-XL [Concomitant]

REACTIONS (1)
  - CARDIAC FAILURE [None]
